FAERS Safety Report 5303736-3 (Version None)
Quarter: 2007Q2

REPORT INFORMATION
  Report Type: 
  Country: None (occurrence: None)
  Receive Date: 20070420
  Receipt Date: 20070410
  Transmission Date: 20071010
  Serious: Yes (Hospitalization)
  Sender: FDA-Public Use
  Company Number: CG-MERCK-0704USA01677

PATIENT
  Age: 35 Year
  Sex: Male
  Weight: 160 kg

DRUGS (1)
  1. MECTIZAN [Suspect]
     Route: 065
     Dates: start: 20061104

REACTIONS (5)
  - ARTHRALGIA [None]
  - BACK PAIN [None]
  - DIARRHOEA [None]
  - URINARY INCONTINENCE [None]
  - VERTIGO [None]
